FAERS Safety Report 24656633 (Version 1)
Quarter: 2024Q4

REPORT INFORMATION
  Report Type: Spontaneous
  Country: US (occurrence: None)
  Receive Date: 20241119
  Receipt Date: 20241119
  Transmission Date: 20250114
  Serious: Yes (Death, Life-Threatening, Hospitalization)
  Sender: Public
  Company Number: None

PATIENT
  Age: 81 Year
  Sex: Female
  Weight: 125.9 kg

DRUGS (20)
  1. DURVALUMAB [Suspect]
     Active Substance: DURVALUMAB
  2. TREMELIMUMAB [Suspect]
     Active Substance: TREMELIMUMAB
  3. ESOMEPRAZOLE [Concomitant]
     Active Substance: ESOMEPRAZOLE
  4. METOPROLOL TARTRATE [Concomitant]
     Active Substance: METOPROLOL TARTRATE
  5. Metoprolol Succinate XL (TOPROL XL) [Concomitant]
  6. Metoclopramide HCL (REGLAN) [Concomitant]
  7. ANTIVERT [Concomitant]
     Active Substance: MECLIZINE HYDROCHLORIDE
  8. ZESTRIL [Concomitant]
     Active Substance: LISINOPRIL
  9. Aspirin (ASPIR-LOW) [Concomitant]
  10. Acetaminophen (TYLENOL PO) [Concomitant]
  11. ALBUTEROL SULFATE [Concomitant]
     Active Substance: ALBUTEROL SULFATE
  12. NORVASC [Concomitant]
     Active Substance: AMLODIPINE BESYLATE
  13. Bumetanide (BUMEX) [Concomitant]
  14. DEXAMETHASONE [Concomitant]
     Active Substance: DEXAMETHASONE
  15. Triamcinolone Acetonide (KENALOG) 0.025% topical cream [Concomitant]
  16. SYNTHROID [Concomitant]
     Active Substance: LEVOTHYROXINE SODIUM
  17. Sucralfate (CARAFATE) [Concomitant]
  18. Prochlorperazine Maleate (COMPAZINE) [Concomitant]
  19. ZOFRAN ODT [Concomitant]
     Active Substance: ONDANSETRON HYDROCHLORIDE
  20. ZOFRAN ODT [Concomitant]
     Active Substance: ONDANSETRON HYDROCHLORIDE

REACTIONS (21)
  - Toxicity to various agents [None]
  - Asthenia [None]
  - COVID-19 [None]
  - Respiratory failure [None]
  - Anal incontinence [None]
  - Urinary incontinence [None]
  - Pelvic mass [None]
  - Pelvic inflammatory disease [None]
  - Hiatus hernia [None]
  - Colitis [None]
  - Oesophageal stenosis [None]
  - Malignant neoplasm progression [None]
  - Procedural failure [None]
  - Decreased appetite [None]
  - Dehydration [None]
  - Diarrhoea [None]
  - Therapy interrupted [None]
  - Atrial fibrillation [None]
  - Mobility decreased [None]
  - Pulmonary embolism [None]
  - Infarction [None]

NARRATIVE: CASE EVENT DATE: 20241010
